FAERS Safety Report 10897980 (Version 1)
Quarter: 2015Q1

REPORT INFORMATION
  Report Type: Spontaneous
  Country: US (occurrence: US)
  Receive Date: 20150309
  Receipt Date: 20150309
  Transmission Date: 20150721
  Serious: No
  Sender: FDA-Public Use
  Company Number: US-009507513-1503USA002853

PATIENT

DRUGS (1)
  1. AFRIN [Suspect]
     Active Substance: OXYMETAZOLINE
     Indication: RHINORRHOEA
     Dosage: UNK, UNKNOWN
     Route: 045

REACTIONS (3)
  - Product quality issue [Unknown]
  - Drug prescribing error [Unknown]
  - Off label use [Unknown]
